FAERS Safety Report 5810182-2 (Version None)
Quarter: 2008Q3

REPORT INFORMATION
  Report Type: 
  Country: None (occurrence: None)
  Receive Date: 20080715
  Receipt Date: 20070921
  Transmission Date: 20090109
  Serious: No
  Sender: FDA-Public Use
  Company Number: A0683547A

PATIENT
  Age: 38 Year
  Sex: Female

DRUGS (3)
  1. IMITREX [Suspect]
     Indication: MIGRAINE
     Dosage: 100MG AS REQUIRED
     Route: 048
     Dates: start: 20070913
  2. ZOVIRAX [Concomitant]
  3. ASPIRIN [Concomitant]

REACTIONS (6)
  - BURNING SENSATION [None]
  - CONTUSION [None]
  - ERYTHEMA [None]
  - FEELING HOT [None]
  - MUSCLE SPASMS [None]
  - SKIN DISCOLOURATION [None]
